FAERS Safety Report 25353209 (Version 1)
Quarter: 2025Q2

REPORT INFORMATION
  Report Type: Spontaneous
  Country: IT (occurrence: IT)
  Receive Date: 20250523
  Receipt Date: 20250523
  Transmission Date: 20250716
  Serious: Yes (Other)
  Sender: SANDOZ
  Company Number: None

PATIENT
  Age: 59 Year
  Sex: Male
  Weight: 75 kg

DRUGS (3)
  1. FILGRASTIM [Suspect]
     Active Substance: FILGRASTIM
     Indication: Colony stimulating factor therapy
     Dosage: 30 10*6.IU, Q24H IN PROFILASSI SOMMINISTRATO ZARZIO 30 MU  1FIALA SC DAL 05/04 AL 10/04 COMPRESO (6
     Route: 058
     Dates: start: 20250405, end: 20250410
  2. EPIRUBICIN [Concomitant]
     Active Substance: EPIRUBICIN
     Indication: Dedifferentiated liposarcoma
     Route: 042
     Dates: start: 20250401, end: 20250403
  3. IFOSFAMIDE [Concomitant]
     Active Substance: IFOSFAMIDE
     Indication: Dedifferentiated liposarcoma
     Route: 042
     Dates: start: 20250401, end: 20250403

REACTIONS (2)
  - Neutropenia [Recovered/Resolved]
  - Mucosal inflammation [Recovering/Resolving]

NARRATIVE: CASE EVENT DATE: 20250411
